FAERS Safety Report 19331863 (Version 1)
Quarter: 2021Q2

REPORT INFORMATION
  Report Type: Report from Study
  Country: None (occurrence: US)
  Receive Date: 20210529
  Receipt Date: 20210529
  Transmission Date: 20210717
  Serious: Yes (Other)
  Sender: FDA-Public Use
  Company Number: US-ABBVIE-21K-163-3890449-00

PATIENT
  Sex: Female

DRUGS (2)
  1. HUMIRA [Suspect]
     Active Substance: ADALIMUMAB
     Indication: HIDRADENITIS
     Route: 058
  2. HUMIRA [Suspect]
     Active Substance: ADALIMUMAB
     Indication: CROHN^S DISEASE
     Route: 058

REACTIONS (7)
  - Tonsillitis [Unknown]
  - Hidradenitis [Not Recovered/Not Resolved]
  - Aphonia [Not Recovered/Not Resolved]
  - Ear infection [Unknown]
  - Balance disorder [Unknown]
  - Pharyngitis streptococcal [Unknown]
  - Asthenia [Unknown]
